FAERS Safety Report 17669223 (Version 1)
Quarter: 2020Q2

REPORT INFORMATION
  Report Type: Spontaneous
  Country: US (occurrence: US)
  Receive Date: 20200414
  Receipt Date: 20200414
  Transmission Date: 20200713
  Serious: Yes (Hospitalization)
  Sender: FDA-Public Use
  Company Number: None

PATIENT
  Age: 48 Year
  Sex: Female
  Weight: 99.3 kg

DRUGS (21)
  1. HYDROQUINONE 4% CREAM [Concomitant]
  2. IBUPROFEN. [Concomitant]
     Active Substance: IBUPROFEN
  3. PROBIOTIC [Concomitant]
     Active Substance: PROBIOTICS NOS
  4. RELATILMAB 160MG [Concomitant]
     Indication: CHORDOMA
     Dosage: FREQUENCY: Q4WEEKS
     Route: 042
  5. OXYCODONE [Concomitant]
     Active Substance: OXYCODONE
  6. MULTIVITAMIN [Concomitant]
     Active Substance: VITAMINS
  7. FERROUS SULFATE. [Concomitant]
     Active Substance: FERROUS SULFATE
  8. METFORMIN [Concomitant]
     Active Substance: METFORMIN HYDROCHLORIDE
  9. HYDROCODONE-ACETAMINOPHEN [Concomitant]
     Active Substance: ACETAMINOPHEN\HYDROCODONE
  10. VITAMIN D [Concomitant]
     Active Substance: VITAMIN D NOS
  11. FIBER 6 [Concomitant]
  12. EMUAID CREAM [Concomitant]
  13. MONISTAT [Concomitant]
     Active Substance: MICONAZOLE NITRATE
  14. ESOMEPRAZOLE. [Concomitant]
     Active Substance: ESOMEPRAZOLE MAGNESIUM
  15. OMEGA 3 [Concomitant]
     Active Substance: OMEGA-3 FATTY ACIDS
  16. INSULIN GLARGINE [Concomitant]
     Active Substance: INSULIN GLARGINE
  17. FLUCONAZOLE. [Concomitant]
     Active Substance: FLUCONAZOLE
  18. NIVOLUMAB 480MG [Suspect]
     Active Substance: NIVOLUMAB
     Indication: CHORDOMA
     Dosage: FREQUENCY: Q4WEEKS
     Route: 042
  19. CALCIUM CARBONATE. [Concomitant]
     Active Substance: CALCIUM CARBONATE
  20. TRIAMCINOLONE 0.1% CREAM [Concomitant]
  21. ONDANSETRON [Concomitant]
     Active Substance: ONDANSETRON

REACTIONS (8)
  - Transplant [None]
  - Cerebrospinal fluid leakage [None]
  - Nausea [None]
  - Dizziness [None]
  - Headache [None]
  - Vision blurred [None]
  - Hemiparesis [None]
  - Disease progression [None]
